FAERS Safety Report 4667511-5 (Version None)
Quarter: 2005Q2

REPORT INFORMATION
  Report Type: 
  Country: None (occurrence: None)
  Receive Date: 20050520
  Receipt Date: 20041112
  Transmission Date: 20051028
  Serious: Yes (Death, Other)
  Sender: FDA-Public Use
  Company Number: PHEH2004US12302

PATIENT
  Age: 43 Year
  Sex: Female

DRUGS (3)
  1. ZOMETA [Suspect]
     Indication: BREAST CANCER METASTATIC
     Dosage: UNK, QMO
     Route: 042
     Dates: end: 20040415
  2. EFFEXOR [Concomitant]
     Indication: DEPRESSION
  3. CHEMOTHERAPEUTICS,OTHER [Concomitant]
     Indication: BREAST CANCER METASTATIC

REACTIONS (8)
  - BONE DISORDER [None]
  - BREAST CANCER METASTATIC [None]
  - IMPAIRED HEALING [None]
  - NEOPLASM PROGRESSION [None]
  - OSTEONECROSIS [None]
  - SEPTIC NECROSIS [None]
  - TOOTH EXTRACTION [None]
  - WOUND DEBRIDEMENT [None]
